FAERS Safety Report 22155151 (Version 1)
Quarter: 2023Q1

REPORT INFORMATION
  Report Type: Report from Study
  Country: AE (occurrence: None)
  Receive Date: 20230330
  Receipt Date: 20230330
  Transmission Date: 20230417
  Serious: Yes (Hospitalization)
  Sender: FDA-Public Use
  Company Number: 2023A070667

PATIENT
  Age: 58 Year
  Sex: Female
  Weight: 55 kg

DRUGS (5)
  1. EVUSHELD [Suspect]
     Active Substance: CILGAVIMAB\TIXAGEVIMAB
     Indication: COVID-19
     Dosage: 6 ML ONCE/SINGLE ADMINISTRATION, LOCATION: GLUTEUS
     Route: 030
     Dates: start: 20221216
  2. SARS-COV-2 VACCINE (VERO CELL), INACTIVATED [Concomitant]
     Indication: COVID-19 prophylaxis
     Dosage: ONCE/SINGLE ADMINISTRATION
     Dates: start: 20210301
  3. SARS-COV-2 VACCINE (VERO CELL), INACTIVATED [Concomitant]
     Indication: COVID-19 prophylaxis
     Dosage: ONCE/SINGLE ADMINISTRATION
     Dates: start: 20210322
  4. SARS-COV-2 VACCINE (VERO CELL), INACTIVATED [Concomitant]
     Indication: COVID-19 prophylaxis
     Dosage: ONCE/SINGLE ADMINISTRATION
     Dates: start: 20210621
  5. SARS-COV-2 VACCINE (VERO CELL), INACTIVATED [Concomitant]
     Indication: COVID-19 prophylaxis
     Dosage: ONCE/SINGLE ADMINISTRATION
     Dates: start: 20220914

REACTIONS (1)
  - Palpitations [Recovered/Resolved]

NARRATIVE: CASE EVENT DATE: 20230307
